FAERS Safety Report 14707085 (Version 2)
Quarter: 2018Q2

REPORT INFORMATION
  Report Type: Report from Study
  Country: US (occurrence: US)
  Receive Date: 20180403
  Receipt Date: 20180406
  Transmission Date: 20180711
  Serious: Yes (Life-Threatening)
  Sender: FDA-Public Use
  Company Number: US-ROCHE-2099289

PATIENT
  Sex: Female

DRUGS (1)
  1. RITUXAN [Suspect]
     Active Substance: RITUXIMAB
     Indication: CEREBRAL DISORDER
     Dosage: ONGOING:UNKNOWN
     Route: 042
     Dates: start: 20180105

REACTIONS (4)
  - Ill-defined disorder [Not Recovered/Not Resolved]
  - Gait disturbance [Not Recovered/Not Resolved]
  - Mental impairment [Not Recovered/Not Resolved]
  - Speech disorder [Not Recovered/Not Resolved]
